FAERS Safety Report 4267532-0 (Version None)
Quarter: 2004Q1

REPORT INFORMATION
  Report Type: 
  Country: None (occurrence: None)
  Receive Date: 20040109
  Receipt Date: 20030814
  Transmission Date: 20041129
  Serious: No
  Sender: FDA-Public Use
  Company Number: US-GLAXOSMITHKLINE-A0421215A

PATIENT
  Age: 38 Year
  Sex: Female

DRUGS (5)
  1. WELLBUTRIN [Suspect]
     Indication: DEPRESSION
     Dosage: 150MG TWICE PER DAY
     Route: 048
     Dates: start: 20030619, end: 20030811
  2. BIRTH CONTROL PILLS [Concomitant]
  3. ZOLOFT [Concomitant]
  4. CENTRUM [Concomitant]
  5. CALCIUM [Concomitant]

REACTIONS (2)
  - TINNITUS [None]
  - WEIGHT DECREASED [None]
